FAERS Safety Report 6726139-3 (Version None)
Quarter: 2010Q2

REPORT INFORMATION
  Report Type: 
  Country: None (occurrence: None)
  Receive Date: 20100514
  Receipt Date: 20100413
  Transmission Date: 20101027
  Serious: Yes (Other)
  Sender: FDA-Public Use
  Company Number: FR-BRISTOL-MYERS SQUIBB COMPANY-15104524

PATIENT
  Age: 66 Year
  Sex: Male

DRUGS (2)
  1. APROVEL TABS 150 MG [Suspect]
     Route: 048
     Dates: start: 20020101
  2. FLECAINIDE ACETATE [Suspect]
     Route: 065

REACTIONS (1)
  - INTERSTITIAL LUNG DISEASE [None]
